FAERS Safety Report 7506919-7 (Version None)
Quarter: 2011Q2

REPORT INFORMATION
  Report Type: 
  Country: None (occurrence: None)
  Receive Date: 20110526
  Receipt Date: 20110512
  Transmission Date: 20111010
  Serious: Yes (Hospitalization, Other)
  Sender: FDA-Public Use
  Company Number: PHHY2011US40901

PATIENT
  Age: 57 Year
  Sex: Female

DRUGS (11)
  1. HYZAAR [Suspect]
     Indication: HYPERTENSION
     Dosage: 1 DF, 100 MG LOSA AND 25 MG HDRO
  2. DIOVAN HCT [Suspect]
     Indication: HYPERTENSION
     Dosage: 1 DF, 160 MG VALS AND 25 MG HYDR
  3. CLARITIN [Concomitant]
  4. POTASSIUM CHLORIDE [Concomitant]
  5. PREVACID [Concomitant]
  6. DIOVAN HCT [Suspect]
     Dosage: 0.5 DF, 160 MG VALS AND 25 MG HYDR
  7. DIOVAN [Suspect]
     Indication: HYPERTENSION
  8. AMOXICILLIN W/CLAVULANATE [Concomitant]
     Indication: RESPIRATORY DISORDER
  9. DIOVAN HCT [Suspect]
     Dosage: 2 DF, 160 MG VALS AND 25 MG HYDR
  10. DEXLANSOPRAZOLE [Concomitant]
  11. LARAZAPIZE [Concomitant]

REACTIONS (13)
  - CHEST DISCOMFORT [None]
  - MUSCLE SPASMS [None]
  - ASTHENIA [None]
  - BLOOD POTASSIUM DECREASED [None]
  - HYPOTENSION [None]
  - SINUS DISORDER [None]
  - MENTAL DISORDER [None]
  - FALL [None]
  - RESPIRATORY DISORDER [None]
  - LOSS OF CONSCIOUSNESS [None]
  - HYPOKALAEMIA [None]
  - EMOTIONAL DISORDER [None]
  - WRONG TECHNIQUE IN DRUG USAGE PROCESS [None]
